FAERS Safety Report 20433443 (Version 2)
Quarter: 2022Q1

REPORT INFORMATION
  Report Type: Spontaneous
  Country: US (occurrence: US)
  Receive Date: 20220205
  Receipt Date: 20220217
  Transmission Date: 20220424
  Serious: Yes (Hospitalization, Other)
  Sender: FDA-Public Use
  Company Number: US-MLMSERVICE-20220119-3321370-1

PATIENT
  Age: 22 Year
  Sex: Female

DRUGS (14)
  1. OXYCODONE [Suspect]
     Active Substance: OXYCODONE
     Indication: Pain
     Dosage: 160 MILLIGRAM, FOUR TIMES/DAY (960 MORPHINE MG EQUIVALENTS)
     Route: 048
  2. OXYCODONE [Suspect]
     Active Substance: OXYCODONE
     Dosage: 60 MILLIGRAMS
     Route: 065
  3. OXYCODONE [Suspect]
     Active Substance: OXYCODONE
     Dosage: 160 MILLIGRAM (160 ? 5)
     Route: 065
  4. OXYCODONE [Suspect]
     Active Substance: OXYCODONE
     Dosage: 160 MILLIGRAM EVERY 4 HOURS
     Route: 065
  5. HYDROMORPHONE [Suspect]
     Active Substance: HYDROMORPHONE
     Indication: Pain
     Dosage: 4 MILLIGRAM, FOUR TIMES/DAY
     Route: 042
  6. HYDROMORPHONE [Suspect]
     Active Substance: HYDROMORPHONE
     Indication: Pain
     Dosage: 16 MILLIGRAM AS NECESSARY ? 1
     Route: 048
  7. BUPRENORPHINE [Concomitant]
     Active Substance: BUPRENORPHINE
     Indication: Pain
     Dosage: 20 MICROGRAM/HOUR, ONCE A DAY (EQUIVALENT TO 1 MG SL BUPRENORPHINE)
     Route: 065
  8. BUPRENORPHINE\NALOXONE [Concomitant]
     Active Substance: BUPRENORPHINE\NALOXONE
     Indication: Pain
     Dosage: 2/0.5 MG SL, FOUR TIMES/DAYUNK UNK, FOUR TIMES/DAY2/0.5MG EVERY 2H ? 4
     Route: 060
  9. BUPRENORPHINE\NALOXONE [Concomitant]
     Active Substance: BUPRENORPHINE\NALOXONE
     Dosage: 8/2MG ? 1 ONCE A DAY (ON DAY 10, DAY 9)
     Route: 065
  10. BUPRENORPHINE\NALOXONE [Concomitant]
     Active Substance: BUPRENORPHINE\NALOXONE
     Dosage: 2/0.5MG EVERY 2H ? 4 ON DAY 9
     Route: 065
  11. BUPRENORPHINE\NALOXONE [Concomitant]
     Active Substance: BUPRENORPHINE\NALOXONE
     Dosage: 4/1MG EVERY 4H ? 6 ON DAY 10
     Route: 065
  12. BUPRENORPHINE\NALOXONE [Concomitant]
     Active Substance: BUPRENORPHINE\NALOXONE
     Dosage: 40/10 MG/DAY (IN FOUR DIVIDED DOSES)
     Route: 065
  13. BUPRENORPHINE\NALOXONE [Concomitant]
     Active Substance: BUPRENORPHINE\NALOXONE
     Dosage: 48 MG/12 MG DAILY IN FOUR DIVIDED DOSES
     Route: 065
  14. BUPRENORPHINE\NALOXONE [Concomitant]
     Active Substance: BUPRENORPHINE\NALOXONE
     Dosage: 12/3 MILLIGRAM
     Route: 065

REACTIONS (7)
  - Withdrawal syndrome [Recovered/Resolved]
  - Drug ineffective [Recovered/Resolved]
  - Loss of personal independence in daily activities [Recovered/Resolved]
  - Constipation [Recovered/Resolved]
  - Sedation [Recovered/Resolved]
  - Somnolence [Unknown]
  - Mood swings [Recovering/Resolving]
